FAERS Safety Report 7956177-4 (Version None)
Quarter: 2011Q4

REPORT INFORMATION
  Report Type: 
  Country: None (occurrence: None)
  Receive Date: 20111114
  Receipt Date: 20111103
  Transmission Date: 20120403
  Serious: Yes (Other)
  Sender: FDA-Public Use
  Company Number: 2011030254

PATIENT
  Sex: Male
  Weight: 83.9154 kg

DRUGS (1)
  1. VIVAGLOBIN [Suspect]
     Indication: IMMUNODEFICIENCY COMMON VARIABLE
     Dosage: (SUBCUTANEOUS)
     Route: 059
     Dates: start: 20091201

REACTIONS (6)
  - FATIGUE [None]
  - JUDGEMENT IMPAIRED [None]
  - HEADACHE [None]
  - INFLUENZA LIKE ILLNESS [None]
  - DISORIENTATION [None]
  - VERTIGO [None]
